FAERS Safety Report 19376081 (Version 2)
Quarter: 2021Q3

REPORT INFORMATION
  Report Type: Report from Study
  Country: DE (occurrence: DE)
  Receive Date: 20210605
  Receipt Date: 20210802
  Transmission Date: 20211014
  Serious: Yes (Life-Threatening, Hospitalization)
  Sender: FDA-Public Use
  Company Number: DE-CELLTRION INC.-2021DE007520

PATIENT

DRUGS (1)
  1. TRUXIMA [Suspect]
     Active Substance: RITUXIMAB-ABBS
     Indication: FOLLICULAR LYMPHOMA
     Dosage: 750 MG, D1 PER CYCLE
     Route: 042

REACTIONS (13)
  - Neutrophil count decreased [Recovered/Resolved]
  - Sleep disorder [Unknown]
  - Chills [Recovered/Resolved]
  - Pain in extremity [Recovered/Resolved]
  - Chest pain [Recovered/Resolved]
  - Constipation [Unknown]
  - Abdominal pain [Not Recovered/Not Resolved]
  - Flatulence [Unknown]
  - Pyrexia [Recovered/Resolved]
  - Diverticulitis [Recovered/Resolved]
  - Nasopharyngitis [Recovered/Resolved]
  - Flank pain [Recovered/Resolved]
  - Infusion related reaction [Recovered/Resolved]

NARRATIVE: CASE EVENT DATE: 20190812
